FAERS Safety Report 18392606 (Version 1)
Quarter: 2020Q4

REPORT INFORMATION
  Report Type: Spontaneous
  Country: GB (occurrence: GB)
  Receive Date: 20201016
  Receipt Date: 20201016
  Transmission Date: 20210114
  Serious: Yes (Other)
  Sender: FDA-Public Use
  Company Number: GB-GLAXOSMITHKLINE-GB2020201947

PATIENT
  Age: 51 Year
  Sex: Male
  Weight: 53 kg

DRUGS (12)
  1. ETOPOSIDE. [Suspect]
     Active Substance: ETOPOSIDE
     Indication: GERM CELL NEOPLASM
     Dosage: UNK
     Route: 065
     Dates: start: 202007
  2. SODIUM CHLORIDE. [Suspect]
     Active Substance: SODIUM CHLORIDE
     Indication: MEDICATION DILUTION
     Dosage: UNK
     Route: 065
     Dates: start: 20200825, end: 20200825
  3. ADCAL D3 [Suspect]
     Active Substance: CALCIUM CARBONATE\CHOLECALCIFEROL
     Indication: MINERAL SUPPLEMENTATION
     Dosage: UNK UNK, QD (TABLET 2UNK )
     Route: 065
  4. APREPITANT. [Suspect]
     Active Substance: APREPITANT
     Dosage: 80 MG, QD (D2)
     Route: 065
     Dates: start: 20200826
  5. DEXAMETHASONE. [Suspect]
     Active Substance: DEXAMETHASONE
     Indication: SUPPORTIVE CARE
     Dosage: 8 MG, QD
     Route: 065
     Dates: start: 20200825
  6. ONDANSETRON [Suspect]
     Active Substance: ONDANSETRON
     Indication: SUPPORTIVE CARE
     Dosage: 16 MG, QD (FOR 3 DAYS (16 MG,1 D))
     Route: 048
     Dates: start: 20200825, end: 2020
  7. THIAMINE. [Suspect]
     Active Substance: THIAMINE
     Indication: HYPOVITAMINOSIS
     Dosage: 300 MG, QD
     Route: 065
  8. APREPITANT. [Suspect]
     Active Substance: APREPITANT
     Indication: SUPPORTIVE CARE
     Dosage: 125 MG (D1)
     Route: 065
     Dates: start: 20200825
  9. ETOPOSIDE. [Suspect]
     Active Substance: ETOPOSIDE
     Dosage: 360 MG (IN 1 LITER 2 BAGS (360 MG))
     Route: 065
     Dates: start: 20200825, end: 20200825
  10. NAUZELIN [Suspect]
     Active Substance: DOMPERIDONE
     Indication: SUPPORTIVE CARE
     Dosage: 30 MG, QD (PRN (30 MG,1 D))
     Route: 048
     Dates: start: 20200825
  11. NICOTINE. [Suspect]
     Active Substance: NICOTINE
     Indication: DRUG THERAPY
     Dosage: 21 MG, QD (PATCH, EVERY 24 HOURS)
     Route: 065
  12. CISPLATIN. [Suspect]
     Active Substance: CISPLATIN
     Indication: GERM CELL NEOPLASM
     Dosage: 79 MG (IN 1 LITER (NOT SPECIFIED))
     Route: 065
     Dates: start: 20200825

REACTIONS (1)
  - Hypersensitivity [Recovered/Resolved]

NARRATIVE: CASE EVENT DATE: 20200825
